FAERS Safety Report 6978710-1 (Version None)
Quarter: 2010Q3

REPORT INFORMATION
  Report Type: 
  Country: None (occurrence: None)
  Receive Date: 20100913
  Receipt Date: 20100903
  Transmission Date: 20110219
  Serious: Yes (Other)
  Sender: FDA-Public Use
  Company Number: B0667765A

PATIENT
  Age: 63 Year
  Sex: Female

DRUGS (1)
  1. VALACYCLOVIR [Suspect]
     Dosage: 500MG PER DAY
     Route: 048

REACTIONS (5)
  - DYSARTHRIA [None]
  - NERVOUS SYSTEM DISORDER [None]
  - NEUROSIS [None]
  - PSYCHOTIC DISORDER [None]
  - RESPIRATORY DEPRESSION [None]
